FAERS Safety Report 9562692 (Version 1)
Quarter: 2013Q3

REPORT INFORMATION
  Report Type: Spontaneous
  Country: US (occurrence: US)
  Receive Date: 20130927
  Receipt Date: 20130927
  Transmission Date: 20140515
  Serious: No
  Sender: FDA-Public Use
  Company Number: US-PFIZER INC-2013277806

PATIENT
  Sex: Male

DRUGS (1)
  1. ADVIL PM [Suspect]
     Dosage: 200 MG, UNK

REACTIONS (2)
  - Accidental exposure to product [Unknown]
  - Self-induced vomiting [Unknown]
